FAERS Safety Report 4792881-7 (Version None)
Quarter: 2005Q4

REPORT INFORMATION
  Report Type: 
  Country: None (occurrence: None)
  Receive Date: 20051010
  Receipt Date: 20050708
  Transmission Date: 20060501
  Serious: Yes (Other)
  Sender: FDA-Public Use
  Company Number: PHEH2005US07626

PATIENT
  Age: 61 Year
  Sex: Female

DRUGS (5)
  1. ZOMETA [Suspect]
     Indication: METASTASES TO BONE
     Dosage: 4 MG EVERY 3 WEEKS
     Dates: start: 20040310, end: 20050519
  2. HORMONES [Concomitant]
  3. LEVAQUIN [Suspect]
     Indication: SINUS DISORDER
     Dosage: 500 MG, UNK
  4. DECADRON [Concomitant]
     Indication: SPINAL CORD COMPRESSION
     Dosage: 2 MG, BID
     Route: 048
     Dates: start: 20040330, end: 20040401
  5. FEMARA [Concomitant]
     Indication: BREAST CANCER
     Dosage: 2.5 MG, UNK
     Route: 048
     Dates: start: 20040301

REACTIONS (9)
  - BONE DISORDER [None]
  - DISCOMFORT [None]
  - FISTULA [None]
  - GINGIVAL DISORDER [None]
  - GINGIVAL ULCERATION [None]
  - OEDEMA PERIPHERAL [None]
  - OSTEONECROSIS [None]
  - SINUS DISORDER [None]
  - SINUSITIS [None]
